FAERS Safety Report 12328646 (Version 1)
Quarter: 2016Q2

REPORT INFORMATION
  Report Type: Spontaneous
  Country: US (occurrence: US)
  Receive Date: 20160503
  Receipt Date: 20160503
  Transmission Date: 20160815
  Serious: No
  Sender: FDA-Public Use
  Company Number: US-BEH-2015049870

PATIENT
  Sex: Female
  Weight: 83.5 kg

DRUGS (10)
  1. HIZENTRA [Suspect]
     Active Substance: HUMAN IMMUNOGLOBULIN G
     Indication: IMMUNODEFICIENCY COMMON VARIABLE
     Route: 058
  2. LIDOCAINE/PRILOCAINE [Concomitant]
  3. EPIPEN [Concomitant]
     Active Substance: EPINEPHRINE
  4. TYLENOL [Concomitant]
     Active Substance: ACETAMINOPHEN
  5. BUDESONIDE. [Concomitant]
     Active Substance: BUDESONIDE
  6. AMOXICILLIN. [Concomitant]
     Active Substance: AMOXICILLIN
  7. DIPHENHYDRAMINE. [Concomitant]
     Active Substance: DIPHENHYDRAMINE
  8. LMX [Concomitant]
     Active Substance: LIDOCAINE
  9. PREDNISONE. [Concomitant]
     Active Substance: PREDNISONE
  10. MELOXICAM. [Concomitant]
     Active Substance: MELOXICAM

REACTIONS (3)
  - Injection site erythema [Unknown]
  - Oedema [Unknown]
  - Injection site pain [Unknown]
